FAERS Safety Report 23686258 (Version 1)
Quarter: 2024Q1

REPORT INFORMATION
  Report Type: Report from Study
  Country: CO (occurrence: CO)
  Receive Date: 20240329
  Receipt Date: 20240329
  Transmission Date: 20240410
  Serious: Yes (Hospitalization, Other)
  Sender: FDA-Public Use
  Company Number: CO-ABBVIE-5696491

PATIENT
  Sex: Male
  Weight: 86 kg

DRUGS (3)
  1. SKYRIZI [Suspect]
     Active Substance: RISANKIZUMAB-RZAA
     Indication: Psoriasis
     Dosage: FORM STRENGTH: 150 MILLIGRAM
     Route: 058
     Dates: start: 20240312
  2. SKYRIZI [Suspect]
     Active Substance: RISANKIZUMAB-RZAA
     Dosage: FORM STRENGTH: 150 MILLIGRAM
     Route: 058
     Dates: start: 20210116
  3. SKYRIZI [Suspect]
     Active Substance: RISANKIZUMAB-RZAA
     Dosage: FORM STRENGTH: 150 MILLIGRAM
     Route: 058
     Dates: end: 20231002

REACTIONS (7)
  - COVID-19 [Recovered/Resolved]
  - Renal impairment [Unknown]
  - Renal injury [Not Recovered/Not Resolved]
  - Psoriasis [Recovering/Resolving]
  - Blood creatinine increased [Not Recovered/Not Resolved]
  - Hypertension [Recovered/Resolved]
  - Glucose tolerance impaired [Recovered/Resolved]

NARRATIVE: CASE EVENT DATE: 20210101
